FAERS Safety Report 10967509 (Version 1)
Quarter: 2015Q1

REPORT INFORMATION
  Report Type: Spontaneous
  Country: US (occurrence: US)
  Receive Date: 20150330
  Receipt Date: 20150330
  Transmission Date: 20150721
  Serious: No
  Sender: FDA-Public Use
  Company Number: US-PFIZER INC-2015105518

PATIENT
  Age: 85 Year
  Sex: Female

DRUGS (1)
  1. TIKOSYN [Suspect]
     Active Substance: DOFETILIDE
     Dosage: 125 ?G, UNK

REACTIONS (3)
  - Asthenia [Unknown]
  - Peripheral swelling [Unknown]
  - Mental disorder [Unknown]
